FAERS Safety Report 9530863 (Version 2)
Quarter: 2017Q2

REPORT INFORMATION
  Report Type: Spontaneous
  Country: CA (occurrence: CA)
  Receive Date: 20130918
  Receipt Date: 20170410
  Transmission Date: 20170830
  Serious: Yes (Other)
  Sender: FDA-Public Use
  Company Number: CA-009507513-1309CAN006022

PATIENT
  Age: 46 Year
  Sex: Male
  Weight: 111 kg

DRUGS (10)
  1. DEXAMETHASONE. [Suspect]
     Active Substance: DEXAMETHASONE
     Dosage: 12 MG, QD
     Route: 048
  2. DEXAMETHASONE. [Suspect]
     Active Substance: DEXAMETHASONE
     Dosage: 8 MG, QD
     Route: 048
  3. DEXAMETHASONE. [Suspect]
     Active Substance: DEXAMETHASONE
     Dosage: 4 MG, QD
     Route: 048
  4. TEMODAL [Suspect]
     Active Substance: TEMOZOLOMIDE
     Dosage: 200 MG/M2, UNK
     Route: 065
  5. TEMODAL [Suspect]
     Active Substance: TEMOZOLOMIDE
     Dosage: 150 MG/M2, UNK
     Route: 065
  6. DEXAMETHASONE. [Suspect]
     Active Substance: DEXAMETHASONE
     Dosage: 4 MG, QD
     Route: 048
  7. DEXAMETHASONE. [Suspect]
     Active Substance: DEXAMETHASONE
     Dosage: 12 MG, QD
     Route: 048
  8. DEXAMETHASONE. [Suspect]
     Active Substance: DEXAMETHASONE
     Dosage: 16 MG, QD
     Route: 048
  9. DEXAMETHASONE. [Suspect]
     Active Substance: DEXAMETHASONE
     Dosage: 12 MG, QD
     Route: 048
  10. TEMODAL [Suspect]
     Active Substance: TEMOZOLOMIDE
     Indication: PRODUCT USED FOR UNKNOWN INDICATION
     Dosage: 75 MG/M2, UNK
     Route: 065

REACTIONS (8)
  - Aphasia [Recovering/Resolving]
  - Cognitive disorder [Recovering/Resolving]
  - Hyperglycaemia [Recovering/Resolving]
  - Condition aggravated [Recovering/Resolving]
  - Headache [Recovering/Resolving]
  - Confusional state [Recovering/Resolving]
  - Hepatic steatosis [Recovering/Resolving]
  - Myopathy [Recovering/Resolving]
